FAERS Safety Report 9964233 (Version 1)
Quarter: 2014Q1

REPORT INFORMATION
  Report Type: Other
  Country: US (occurrence: US)
  Receive Date: 20140305
  Receipt Date: 20140305
  Transmission Date: 20141002
  Serious: Yes (Death)
  Sender: FDA-Public Use
  Company Number: US-FRI-1000054816

PATIENT
  Age: 38 Year
  Sex: Female

DRUGS (7)
  1. CITALOPRAM [Suspect]
  2. OXYCODONE [Suspect]
  3. ACETAMINOPHEN/HYDROCODONE [Suspect]
  4. METHADONE [Suspect]
  5. ALPRAZOLAM [Suspect]
  6. DIAZEPAM [Suspect]
  7. COCAINE [Suspect]

REACTIONS (1)
  - Drug abuse [Fatal]
